FAERS Safety Report 15498456 (Version 1)
Quarter: 2018Q4

REPORT INFORMATION
  Report Type: Spontaneous
  Country: US (occurrence: US)
  Receive Date: 20181005
  Receipt Date: 20181005
  Transmission Date: 20190205
  Serious: Yes (Hospitalization)
  Sender: FDA-Public Use
  Company Number: None

PATIENT
  Age: 54 Year
  Sex: Female
  Weight: 84.8 kg

DRUGS (2)
  1. DOXIL [Concomitant]
     Active Substance: DOXORUBICIN HYDROCHLORIDE
     Dates: end: 20180904
  2. BEVACIZUMAB (RHUMAB VEGF( (704865) [Suspect]
     Active Substance: BEVACIZUMAB
     Dates: end: 20180918

REACTIONS (6)
  - Paronychia [None]
  - Disease progression [None]
  - Lymphadenopathy [None]
  - Swelling face [None]
  - Swelling [None]
  - Headache [None]

NARRATIVE: CASE EVENT DATE: 20180924
